FAERS Safety Report 17606400 (Version 1)
Quarter: 2020Q1

REPORT INFORMATION
  Report Type: Other
  Country: US (occurrence: US)
  Receive Date: 20200331
  Receipt Date: 20200331
  Transmission Date: 20200409
  Serious: No
  Sender: FDA-Public Use
  Company Number: US-GRAVITI PHARMACEUTICALS PRIVATE LIMITED-2082147

PATIENT
  Age: 73 Year
  Sex: Male
  Weight: 99 kg

DRUGS (5)
  1. LISINOPRIL. [Concomitant]
     Active Substance: LISINOPRIL
     Route: 065
  2. METOPROLOL TARTRATE. [Concomitant]
     Active Substance: METOPROLOL TARTRATE
     Route: 065
  3. ELIQUIS [Concomitant]
     Active Substance: APIXABAN
     Route: 065
  4. ATORVASTATIN CALCIUM. [Suspect]
     Active Substance: ATORVASTATIN CALCIUM
     Indication: HYPERCHOLESTEROLAEMIA
     Route: 048
     Dates: start: 20190101, end: 20191001
  5. EZETIMIBE. [Concomitant]
     Active Substance: EZETIMIBE
     Route: 065

REACTIONS (4)
  - Dry eye [Unknown]
  - Eye disorder [Unknown]
  - Rash [Unknown]
  - Dry skin [Unknown]

NARRATIVE: CASE EVENT DATE: 20190201
